FAERS Safety Report 8484339-9 (Version None)
Quarter: 2012Q3

REPORT INFORMATION
  Report Type: 
  Country: None (occurrence: None)
  Receive Date: 20120703
  Receipt Date: 20120626
  Transmission Date: 20120928
  Serious: Yes (Hospitalization, Other)
  Sender: FDA-Public Use
  Company Number: PHHY2012DE022743

PATIENT
  Age: 73 Year
  Sex: Female

DRUGS (1)
  1. TASIGNA [Suspect]
     Indication: CHRONIC MYELOID LEUKAEMIA
     Dosage: 2 DF, BID
     Route: 048
     Dates: start: 20110201, end: 20120622

REACTIONS (10)
  - HYPOTONIA [None]
  - MYALGIA [None]
  - SCIATICA [None]
  - GAIT DISTURBANCE [None]
  - SWELLING [None]
  - ASCITES [None]
  - MUSCLE SPASMS [None]
  - FLATULENCE [None]
  - DYSPNOEA [None]
  - ABDOMINAL RIGIDITY [None]
